FAERS Safety Report 9459641 (Version 1)
Quarter: 2013Q3

REPORT INFORMATION
  Report Type: Spontaneous
  Country: US (occurrence: US)
  Receive Date: 20130815
  Receipt Date: 20130815
  Transmission Date: 20140515
  Serious: No
  Sender: FDA-Public Use
  Company Number: US-B.I. PHARMACEUTICALS,INC./RIDGEFIELD-2013-BI-24119BP

PATIENT
  Age: 63 Year
  Sex: Female

DRUGS (15)
  1. SPIRIVA [Suspect]
     Indication: CHRONIC OBSTRUCTIVE PULMONARY DISEASE
     Dosage: 18 MCG
     Route: 055
     Dates: start: 2010
  2. ATORVASTATIN [Concomitant]
     Indication: MYOCARDIAL INFARCTION
     Dosage: 20 MG
     Route: 048
     Dates: start: 2001
  3. HYDROCODONE [Concomitant]
     Indication: RHEUMATOID ARTHRITIS
     Dosage: (TABLET) STRENGTH: 10/325 MG; DAILY DOSE: 40 MG/1300 MG
     Route: 048
     Dates: start: 2000
  4. CARISOPRODOL [Concomitant]
     Indication: RHEUMATOID ARTHRITIS
     Dosage: 1050 MG
     Route: 048
     Dates: start: 2000
  5. CELEBREX [Concomitant]
     Indication: RHEUMATOID ARTHRITIS
     Dosage: 400 MG
     Route: 048
     Dates: start: 1998
  6. ATENOLOL [Concomitant]
     Indication: MYOCARDIAL INFARCTION
     Dosage: 50 MG
     Route: 048
     Dates: start: 2001
  7. SIMVASTATIN [Concomitant]
     Indication: BLOOD CHOLESTEROL INCREASED
     Dosage: 20 MG
     Route: 048
     Dates: start: 2001
  8. CLOPIDOGREL [Concomitant]
     Indication: MYOCARDIAL INFARCTION
     Dosage: 75 MG
     Route: 048
     Dates: start: 2001
  9. VERAPAMIL SR [Concomitant]
     Indication: MYOCARDIAL INFARCTION
     Dosage: 360 MG
     Route: 048
     Dates: start: 2001
  10. ISOSORBIDE ER [Concomitant]
     Dosage: 30 MG
     Route: 048
     Dates: start: 2008
  11. THEOPHYLLINE ER [Concomitant]
     Indication: DYSPNOEA
     Dosage: 300 MG
     Route: 048
  12. ESTRADIOL [Concomitant]
     Indication: HORMONE THERAPY
     Dosage: 1 MG
     Route: 048
     Dates: start: 1971
  13. ALPRAZOLAM [Concomitant]
     Indication: ANXIETY
     Dosage: 3 MG
     Route: 048
     Dates: start: 1971
  14. SERTRALINE [Concomitant]
     Indication: ANXIETY
     Dosage: 50 MG
     Route: 048
  15. VERAPAMIL SR [Concomitant]
     Indication: MYOCARDIAL INFARCTION
     Dosage: 360 MG
     Route: 048

REACTIONS (4)
  - Dyspnoea [Recovered/Resolved]
  - Chest pain [Recovered/Resolved]
  - Product quality issue [Recovered/Resolved]
  - Product quality control issue [Recovered/Resolved]
